FAERS Safety Report 14364859 (Version 4)
Quarter: 2018Q2

REPORT INFORMATION
  Report Type: Report from Study
  Country: DE (occurrence: DE)
  Receive Date: 20180108
  Receipt Date: 20180424
  Transmission Date: 20180711
  Serious: Yes (Other)
  Sender: FDA-Public Use
  Company Number: DE-GILEAD-2017-0292021

PATIENT
  Age: 57 Year
  Sex: Male
  Weight: 70 kg

DRUGS (37)
  1. ISENTRESS [Suspect]
     Active Substance: RALTEGRAVIR POTASSIUM
     Indication: HIV INFECTION
     Dosage: 400 MG, BID
     Route: 048
     Dates: start: 20120701
  2. DOXEPIN [Concomitant]
     Active Substance: DOXEPIN
     Dosage: 50 MG, UNK
     Route: 065
     Dates: start: 20140204
  3. AZITHROMYCIN ANHYDROUS. [Concomitant]
     Active Substance: AZITHROMYCIN ANHYDROUS
     Dosage: 1 DF, QD
     Dates: start: 20130705, end: 20130707
  4. ACC LONG [Concomitant]
     Active Substance: ACETYLCYSTEINE
     Route: 065
  5. FOLIC ACID. [Concomitant]
     Active Substance: FOLIC ACID
     Dosage: UNK
     Route: 065
  6. EMTRICITABINE/TENOFOVIR DISOPROXIL FUMARATE [Suspect]
     Active Substance: EMTRICITABINE\TENOFOVIR DISOPROXIL FUMARATE
     Indication: HIV INFECTION
     Dosage: 200/245 MG, QD
     Route: 048
     Dates: start: 20110530, end: 20160731
  7. ISENTRESS [Suspect]
     Active Substance: RALTEGRAVIR POTASSIUM
     Dosage: 800 MG, QD
     Route: 048
     Dates: start: 20120701
  8. DOXEPIN [Concomitant]
     Active Substance: DOXEPIN
     Dosage: 150 MG, UNK
     Route: 065
  9. DOLOPHINE [Concomitant]
     Active Substance: METHADONE HYDROCHLORIDE
     Dosage: 70 MG, UNK
     Route: 065
  10. FERRO-SANOL DUODENAL [Concomitant]
     Active Substance: FERROUS GLYCINE SULFATE
     Dosage: 1 DF, UNK
     Route: 065
  11. CEFUROXIM [Concomitant]
     Active Substance: CEFUROXIME
     Route: 065
  12. VITAMIN D3 [Concomitant]
     Active Substance: CHOLECALCIFEROL
     Route: 065
  13. ISENTRESS [Suspect]
     Active Substance: RALTEGRAVIR POTASSIUM
     Dosage: 400 MG, BID
     Route: 065
     Dates: start: 20120705
  14. DOLOPHINE [Concomitant]
     Active Substance: METHADONE HYDROCHLORIDE
     Dosage: 40 MG, UNK
     Route: 065
  15. DOLOPHINE [Concomitant]
     Active Substance: METHADONE HYDROCHLORIDE
     Dosage: 35 MG, UNK
     Route: 065
  16. AZITHROMYCIN ANHYDROUS. [Concomitant]
     Active Substance: AZITHROMYCIN ANHYDROUS
  17. CEFUROXIM [Concomitant]
     Active Substance: CEFUROXIME
     Dosage: 250 MG, BID
     Route: 065
     Dates: start: 20120830, end: 20120905
  18. ACC LONG [Concomitant]
     Active Substance: ACETYLCYSTEINE
     Dosage: 1 DF, QD
     Route: 065
     Dates: start: 20121207
  19. FOLIC ACID. [Concomitant]
     Active Substance: FOLIC ACID
     Dosage: 9000 UG, Q4WK
     Route: 042
     Dates: start: 20131005, end: 20140408
  20. FOLIC ACID. [Concomitant]
     Active Substance: FOLIC ACID
     Dosage: 3000 MICROGRAM
     Route: 042
     Dates: start: 20131005, end: 20140408
  21. CEFUROXIM [Concomitant]
     Active Substance: CEFUROXIME
     Dosage: 250 UNK, UNK
     Route: 065
     Dates: start: 20121116, end: 20121122
  22. RIBAVIRIN. [Suspect]
     Active Substance: RIBAVIRIN
     Indication: CHRONIC HEPATITIS C
     Dosage: 1000 MG, QD
     Route: 048
     Dates: start: 20120802, end: 20120815
  23. RIBAVIRIN. [Suspect]
     Active Substance: RIBAVIRIN
     Dosage: 800 MG, QD
     Route: 048
     Dates: start: 20120816, end: 20130705
  24. PEGASYS [Suspect]
     Active Substance: PEGINTERFERON ALFA-2A
     Indication: CHRONIC HEPATITIS C
     Dosage: 180 UG, Q1WK
     Route: 058
     Dates: start: 20120802, end: 20130705
  25. TELAPREVIR [Suspect]
     Active Substance: TELAPREVIR
     Indication: CHRONIC HEPATITIS C
     Dosage: 2250 MG, QD
     Route: 048
     Dates: start: 20120802, end: 20121126
  26. DOXEPIN [Concomitant]
     Active Substance: DOXEPIN
     Dosage: UNK
  27. AZITHROMYCIN ANHYDROUS. [Concomitant]
     Active Substance: AZITHROMYCIN ANHYDROUS
     Dosage: 500 MG, UNK
     Route: 065
  28. AZITHROMYCIN ANHYDROUS. [Concomitant]
     Active Substance: AZITHROMYCIN ANHYDROUS
     Dosage: 500 MG, UNK
     Route: 065
  29. AZITHROMYCIN ANHYDROUS. [Concomitant]
     Active Substance: AZITHROMYCIN ANHYDROUS
     Dosage: 1 DF, QD
     Dates: start: 20130510, end: 20130512
  30. CEFUROXIM [Concomitant]
     Active Substance: CEFUROXIME
     Route: 065
  31. ACC LONG [Concomitant]
     Active Substance: ACETYLCYSTEINE
     Route: 065
  32. DOLOPHINE [Concomitant]
     Active Substance: METHADONE HYDROCHLORIDE
     Dosage: 50 MG/ML
     Route: 065
  33. AZITHROMYCIN ANHYDROUS. [Concomitant]
     Active Substance: AZITHROMYCIN ANHYDROUS
  34. CEFUROXIM [Concomitant]
     Active Substance: CEFUROXIME
     Dosage: 500 MG, BID
     Route: 065
     Dates: start: 20121207, end: 20121213
  35. DOLOPHINE [Concomitant]
     Active Substance: METHADONE HYDROCHLORIDE
     Dosage: 25 MG, UNK
     Route: 065
  36. FORTIMEL [Concomitant]
     Active Substance: DIETARY SUPPLEMENT
     Dosage: 8X4X125 TAKEN
     Route: 065
  37. ACC LONG [Concomitant]
     Active Substance: ACETYLCYSTEINE
     Dosage: 1 DF, QD
     Route: 065
     Dates: start: 20130705

REACTIONS (18)
  - Aortic arteriosclerosis [Not Recovered/Not Resolved]
  - Depression [Recovered/Resolved]
  - Nasopharyngitis [Recovered/Resolved]
  - Pruritus [Recovered/Resolved]
  - Fatigue [Recovered/Resolved]
  - Oropharyngeal pain [Recovered/Resolved]
  - Weight decreased [Not Recovered/Not Resolved]
  - Pyrexia [Recovered/Resolved]
  - Headache [Recovered/Resolved]
  - Chills [Recovered/Resolved]
  - Osteoarthritis [Not Recovered/Not Resolved]
  - Pyrexia [Recovered/Resolved]
  - Iron deficiency anaemia [Recovered/Resolved]
  - Anaemia [Not Recovered/Not Resolved]
  - Influenza [Recovered/Resolved]
  - Gastrointestinal disorder [Recovered/Resolved]
  - Injection site erythema [Recovered/Resolved]
  - Dyspnoea [Recovered/Resolved]

NARRATIVE: CASE EVENT DATE: 20120802
